FAERS Safety Report 8830128 (Version 2)
Quarter: 2013Q1

REPORT INFORMATION
  Report Type: Report from Study
  Country: JP (occurrence: JP)
  Receive Date: 20121008
  Receipt Date: 20130110
  Transmission Date: 20140127
  Serious: Yes (Other)
  Sender: FDA-Public Use
  Company Number: JP-VERTEX PHARMACEUTICAL INC.-2012-022171

PATIENT
  Age: 65 Year
  Sex: Male

DRUGS (16)
  1. VX-950 (TELAPREVIR) [Suspect]
     Indication: CHRONIC HEPATITIS C
     Dosage: 2250 MG, QD
     Route: 048
     Dates: start: 20120316, end: 20120517
  2. VX-950 (TELAPREVIR) [Suspect]
     Dosage: 1500 MG,QD
     Route: 048
     Dates: start: 20120518, end: 20120610
  3. RIBAVIRIN [Suspect]
     Indication: CHRONIC HEPATITIS C
     Dosage: 600 MG,QD
     Route: 048
     Dates: start: 20120316, end: 20120510
  4. RIBAVIRIN [Suspect]
     Dosage: 400 MG, QD
     Route: 048
     Dates: start: 20120511, end: 20120517
  5. RIBAVIRIN [Suspect]
     Dosage: 200 MG, QD
     Route: 048
     Dates: start: 20120518, end: 20120726
  6. RIBAVIRIN [Suspect]
     Dosage: 400 MG, QD
     Route: 048
     Dates: start: 20120727, end: 20120831
  7. PEGINTERFERON ALFA-2B [Suspect]
     Indication: CHRONIC HEPATITIS C
     Dosage: 1.5 ?G/KG, QW
     Route: 058
     Dates: start: 20120316, end: 20120831
  8. BLOPRESS [Concomitant]
     Dosage: 8 MG, QD
     Route: 048
     Dates: end: 20120610
  9. AMLODIN [Concomitant]
     Dosage: 2.5 MG, QD
     Route: 048
     Dates: end: 20120610
  10. EBASTEL D [Concomitant]
     Dosage: 10 MG, QD
     Route: 048
  11. VESICARE [Concomitant]
     Dosage: 10 MG, QD
     Route: 048
  12. CERCINE [Concomitant]
     Dosage: 4 MG, QD
     Route: 048
  13. URSO                               /00465701/ [Concomitant]
     Dosage: 600 MG, QD
     Route: 048
     Dates: end: 20120531
  14. ZYLORIC [Concomitant]
     Route: 048
  15. EURAX [Concomitant]
     Route: 061
  16. PROPADERM [Concomitant]
     Route: 061

REACTIONS (1)
  - Haemoglobin decreased [Not Recovered/Not Resolved]
